FAERS Safety Report 18540868 (Version 1)
Quarter: 2020Q4

REPORT INFORMATION
  Report Type: Spontaneous
  Country: US (occurrence: US)
  Receive Date: 20201124
  Receipt Date: 20201124
  Transmission Date: 20210114
  Serious: Yes (Hospitalization)
  Sender: FDA-Public Use
  Company Number: None

PATIENT
  Age: 53 Year
  Sex: Female
  Weight: 126.6 kg

DRUGS (1)
  1. RITUXIMAB (MOAB C2B8 ANTI CD20, CHIMERIC) [Suspect]
     Active Substance: RITUXIMAB
     Dates: end: 20200828

REACTIONS (5)
  - Diarrhoea [None]
  - Rhinorrhoea [None]
  - Nausea [None]
  - Respiratory alkalosis [None]
  - Asthenia [None]

NARRATIVE: CASE EVENT DATE: 20201116
